FAERS Safety Report 16313313 (Version 5)
Quarter: 2019Q3

REPORT INFORMATION
  Report Type: Report from Study
  Country: FR (occurrence: FR)
  Receive Date: 20190515
  Receipt Date: 20190723
  Transmission Date: 20191004
  Serious: Yes (Death, Life-Threatening, Hospitalization)
  Sender: FDA-Public Use
  Company Number: FR-ROCHE-2315500

PATIENT
  Age: 81 Year
  Sex: Male
  Weight: 66 kg

DRUGS (14)
  1. METOCHLOPRAMIDE [Concomitant]
     Active Substance: METOCLOPRAMIDE HYDROCHLORIDE
     Route: 065
     Dates: start: 20190502
  2. BACTRIM [Concomitant]
     Active Substance: SULFAMETHOXAZOLE\TRIMETHOPRIM
     Route: 065
     Dates: start: 20190502
  3. EPORATIO [Concomitant]
     Active Substance: ERYTHROPOIETIN
     Route: 065
     Dates: start: 20190502
  4. DIGOXINE [Concomitant]
     Active Substance: DIGOXIN
     Indication: TACHYCARDIA
     Route: 065
     Dates: start: 201905
  5. CONTRAMAL [Concomitant]
     Active Substance: TRAMADOL HYDROCHLORIDE
     Route: 065
     Dates: start: 20190502
  6. VALACYCLOVIR [Concomitant]
     Active Substance: VALACYCLOVIR HYDROCHLORIDE
     Route: 065
  7. ALLOPURINOL. [Concomitant]
     Active Substance: ALLOPURINOL
     Route: 065
  8. ATEZOLIZUMAB. [Suspect]
     Active Substance: ATEZOLIZUMAB
     Indication: LYMPHOMA
     Dosage: DATE OF LAST ADMINISTRATION BEFORE SAE: 16/APR/2019
     Route: 042
     Dates: start: 20190326, end: 20190506
  9. OBINUTUZUMAB. [Suspect]
     Active Substance: OBINUTUZUMAB
     Indication: LYMPHOMA
     Dosage: DATE OF LAST ADMINISTRATION BEFORE SAE: 15/APR/2019
     Route: 065
     Dates: start: 20190325, end: 20190506
  10. VENTOLINE [SALBUTAMOL] [Concomitant]
     Active Substance: ALBUTEROL SULFATE
     Route: 065
     Dates: start: 20190502
  11. DOLIPRANE [Concomitant]
     Active Substance: ACETAMINOPHEN
     Route: 065
  12. ZARZIO [Concomitant]
     Active Substance: FILGRASTIM
     Route: 065
     Dates: start: 20190502
  13. FUROSEMIDE. [Concomitant]
     Active Substance: FUROSEMIDE
     Indication: OEDEMA
     Route: 065
     Dates: start: 201905
  14. VENETOCLAX. [Suspect]
     Active Substance: VENETOCLAX
     Indication: LYMPHOMA
     Dosage: DATE OF LAST ADMINISTRATION PRIOR TO SAE: MAY/2019
     Route: 065
     Dates: start: 20190401, end: 201905

REACTIONS (5)
  - Lung disorder [Fatal]
  - Oedema [Not Recovered/Not Resolved]
  - Lung infection [Unknown]
  - Faecal vomiting [Fatal]
  - Ascites [Not Recovered/Not Resolved]

NARRATIVE: CASE EVENT DATE: 201905
